FAERS Safety Report 5875177-1 (Version None)
Quarter: 2008Q3

REPORT INFORMATION
  Report Type: 
  Country: None (occurrence: None)
  Receive Date: 20080909
  Receipt Date: 20080909
  Transmission Date: 20090109
  Serious: Yes (Other)
  Sender: FDA-Public Use
  Company Number: A0746481A

PATIENT
  Age: 53 Year
  Sex: Female
  Weight: 104 kg

DRUGS (2)
  1. ALLI [Suspect]
     Dates: end: 20080905
  2. BENAZEPRIL HYDROCHLORIDE AND HYDROCHLOROTHIAZIDE [Suspect]

REACTIONS (3)
  - CONSTIPATION [None]
  - MOUTH HAEMORRHAGE [None]
  - THROMBOSIS [None]
